FAERS Safety Report 20437604 (Version 1)
Quarter: 2022Q1

REPORT INFORMATION
  Report Type: Spontaneous
  Country: US (occurrence: US)
  Receive Date: 20220207
  Receipt Date: 20220207
  Transmission Date: 20220423
  Serious: Yes (Other)
  Sender: FDA-Public Use
  Company Number: US-ELI_LILLY_AND_COMPANY-US202201010415

PATIENT
  Sex: Female

DRUGS (3)
  1. HUMALOG [Suspect]
     Active Substance: INSULIN LISPRO
     Indication: Type 2 diabetes mellitus
     Dosage: UNK UNK, UNKNOWN
     Route: 065
  2. BASAGLAR [Suspect]
     Active Substance: INSULIN GLARGINE
     Indication: Type 2 diabetes mellitus
     Dosage: UNK UNK, UNKNOWN BEDTIME
     Route: 065
     Dates: start: 2020
  3. NOVOLOG [Concomitant]
     Active Substance: INSULIN ASPART
     Indication: Type 2 diabetes mellitus
     Dosage: WITH MEALS AND SNACKS

REACTIONS (15)
  - Diabetic retinopathy [Recovering/Resolving]
  - Vertigo [Recovered/Resolved]
  - Limb injury [Recovering/Resolving]
  - Muscle injury [Recovering/Resolving]
  - Stress fracture [Recovering/Resolving]
  - Blood glucose increased [Unknown]
  - Anxiety [Recovering/Resolving]
  - Dysgraphia [Recovering/Resolving]
  - Glycosylated haemoglobin increased [Recovering/Resolving]
  - Hypoaesthesia [Unknown]
  - Pancreatic disorder [Unknown]
  - COVID-19 [Recovered/Resolved]
  - Chest discomfort [Recovered/Resolved]
  - Fall [Recovered/Resolved]
  - Dyspnoea [Recovered/Resolved]
